FAERS Safety Report 5520909-5 (Version None)
Quarter: 2007Q4

REPORT INFORMATION
  Report Type: 
  Country: None (occurrence: None)
  Receive Date: 20071119
  Receipt Date: 20071109
  Transmission Date: 20080405
  Serious: Yes (Hospitalization)
  Sender: FDA-Public Use
  Company Number: AU-AMGEN-US245155

PATIENT
  Sex: Male

DRUGS (9)
  1. PANITUMUMAB [Suspect]
     Indication: COLORECTAL CANCER
     Route: 042
     Dates: start: 20070418, end: 20070912
  2. IRINOTECAN HCL [Concomitant]
     Indication: COLORECTAL CANCER
     Route: 065
  3. LEUCOVORIN CALCIUM [Concomitant]
     Indication: COLORECTAL CANCER
     Route: 065
  4. FLUOROURACIL [Concomitant]
     Indication: COLORECTAL CANCER
     Route: 065
  5. OXYCONTIN [Concomitant]
     Route: 048
  6. AMITRIPTYLINE [Concomitant]
     Route: 048
  7. PARACETAMOL [Concomitant]
     Route: 048
  8. LIPITOR [Concomitant]
     Route: 048
  9. MOVICOL [Concomitant]
     Route: 048

REACTIONS (2)
  - PERINEPHRIC COLLECTION [None]
  - RENAL INFARCT [None]
